FAERS Safety Report 9919229 (Version 1)
Quarter: 2014Q1

REPORT INFORMATION
  Report Type: Spontaneous
  Country: SK (occurrence: SK)
  Receive Date: 20140224
  Receipt Date: 20140224
  Transmission Date: 20141002
  Serious: Yes (Death, Life-Threatening)
  Sender: FDA-Public Use
  Company Number: SK-ROCHE-1348730

PATIENT
  Age: 47 Year
  Sex: Male

DRUGS (1)
  1. MABTHERA [Suspect]
     Indication: B-CELL LYMPHOMA STAGE IV
     Dosage: 700MG OF RITUXIMAB IN 500ML PHYSIOLOGICAL SALINE
     Route: 041
     Dates: start: 20140121, end: 20140121

REACTIONS (6)
  - Cardiopulmonary failure [Fatal]
  - Dyspnoea [Not Recovered/Not Resolved]
  - Tachypnoea [Not Recovered/Not Resolved]
  - Tachycardia [Not Recovered/Not Resolved]
  - Hyperhidrosis [Not Recovered/Not Resolved]
  - Circulatory collapse [Not Recovered/Not Resolved]
